FAERS Safety Report 19467645 (Version 1)
Quarter: 2021Q2

REPORT INFORMATION
  Report Type: Spontaneous
  Country: US (occurrence: US)
  Receive Date: 20210628
  Receipt Date: 20210628
  Transmission Date: 20210717
  Serious: No
  Sender: FDA-Public Use
  Company Number: NVSC2021US139432

PATIENT
  Sex: Male

DRUGS (2)
  1. TIMOLO [Concomitant]
     Indication: PRODUCT USED FOR UNKNOWN INDICATION
     Dosage: UNK
     Route: 065
  2. LATANOPROST. [Suspect]
     Active Substance: LATANOPROST
     Indication: PRODUCT USED FOR UNKNOWN INDICATION
     Dosage: ONCE A NIGHT
     Route: 065

REACTIONS (7)
  - Ocular hyperaemia [Unknown]
  - Dysphonia [Unknown]
  - Pruritus [Unknown]
  - Swelling [Unknown]
  - Skin irritation [Unknown]
  - Lip swelling [Unknown]
  - Eye colour change [Unknown]
